FAERS Safety Report 8581745 (Version 2)
Quarter: 2016Q1

REPORT INFORMATION
  Report Type: Spontaneous
  Country: FR (occurrence: FR)
  Receive Date: 20120528
  Receipt Date: 20160218
  Transmission Date: 20160526
  Serious: Yes (Other)
  Sender: FDA-Public Use
  Company Number: FR-BRISTOL-MYERS SQUIBB COMPANY-16624793

PATIENT
  Age: 21 Year
  Sex: Female

DRUGS (2)
  1. VEPESID [Suspect]
     Active Substance: ETOPOSIDE
     Indication: OVARIAN DYSGERMINOMA STAGE UNSPECIFIED
     Dosage: 1DF= 5G/M3  4 CYCLES
     Route: 065
  2. BRIPLATIN [Suspect]
     Active Substance: CISPLATIN
     Indication: OVARIAN DYSGERMINOMA STAGE UNSPECIFIED
     Dosage: 5 DAYS, 4 CYCLES
     Route: 065

REACTIONS (3)
  - Oligohydramnios [Unknown]
  - Maternal exposure during pregnancy [Recovered/Resolved]
  - Live birth [Unknown]
